FAERS Safety Report 8395257-9 (Version None)
Quarter: 2012Q2

REPORT INFORMATION
  Report Type: 
  Country: None (occurrence: None)
  Receive Date: 20120530
  Receipt Date: 20120521
  Transmission Date: 20120825
  Serious: Yes (Hospitalization, Other)
  Sender: FDA-Public Use
  Company Number: PHHO2010JP02048

PATIENT
  Sex: Male
  Weight: 83 kg

DRUGS (24)
  1. LANTUS [Concomitant]
     Dosage: 14 IU, DAILY
     Route: 058
     Dates: start: 20110822
  2. CONIEL [Concomitant]
     Indication: HYPERTENSION
     Dosage: 8 MG, UNK
     Route: 048
     Dates: start: 20080929, end: 20100125
  3. ALLOPURINOL [Concomitant]
     Indication: HYPERURICAEMIA
     Dosage: 100 MG, BID
     Route: 048
     Dates: start: 20060101
  4. NOVORAPID [Concomitant]
     Indication: TYPE 2 DIABETES MELLITUS
     Dosage: 30 IU, UNK
     Route: 058
     Dates: start: 20081027
  5. LASIX [Concomitant]
     Indication: NEPHROTIC SYNDROME
     Dosage: 60 MG, UNK
     Route: 048
     Dates: start: 20120320
  6. EPALRESTAT [Concomitant]
     Indication: DIABETIC NEUROPATHY
     Dosage: 150 MG, QD
     Route: 048
     Dates: start: 20110214
  7. LANTUS [Concomitant]
     Indication: TYPE 2 DIABETES MELLITUS
     Dosage: 26 IU, UNK
     Route: 058
     Dates: start: 20091102
  8. LANTUS [Concomitant]
     Dosage: 8 IU, UNK
     Route: 058
     Dates: start: 20111013
  9. DIART [Concomitant]
     Dosage: 60 MG, UNK
     Route: 048
     Dates: start: 20100817
  10. ACECOL [Concomitant]
     Indication: HYPERTENSION
     Dosage: 4 MG, UNK
     Route: 048
     Dates: start: 20090526
  11. ASPIRIN [Concomitant]
     Indication: ANGINA PECTORIS
     Dosage: 100 MG, UNK
     Route: 048
     Dates: start: 20120404
  12. ALISKIREN [Suspect]
     Indication: CARDIOVASCULAR DISORDER
     Dosage: UNK
     Route: 048
     Dates: start: 20081208, end: 20090511
  13. KINEDAK [Concomitant]
     Indication: DIABETIC NEUROPATHY
     Dosage: 150 MG, UNK
     Route: 048
     Dates: start: 20060101
  14. NOVORAPID [Concomitant]
     Dosage: 12 IU, DAILY
     Route: 058
     Dates: start: 20111213
  15. DIART [Concomitant]
     Indication: NEPHROTIC SYNDROME
     Dosage: 270 MG, UNK
     Route: 048
     Dates: start: 20090406
  16. ZETIA [Concomitant]
     Indication: HYPERLIPIDAEMIA
     Dosage: 10 MG, UNK
     Route: 048
     Dates: start: 20090810
  17. ATELEC [Concomitant]
     Indication: HYPERTENSION
     Dosage: 20 MG, UNK
     Route: 048
     Dates: start: 20100126
  18. ALLOPURINOL [Concomitant]
     Indication: HYPERURICAEMIA
     Dosage: 100 MG, UNK
     Dates: start: 20100816
  19. ALDACTONE [Concomitant]
     Indication: NEPHROTIC SYNDROME
  20. ALDACTONE [Concomitant]
     Indication: HYPERTENSION
     Dosage: 25 MG, UNK
     Route: 048
     Dates: start: 20100706
  21. RABEPRAZOLE SODIUM [Concomitant]
     Indication: GASTRITIS PROPHYLAXIS
     Dosage: 10 MG, QD
     Route: 048
     Dates: start: 20120211
  22. ADONA [Concomitant]
     Indication: VITREOUS HAEMORRHAGE
     Dosage: 90 MG, UNK
     Route: 048
     Dates: start: 20090827
  23. LIPITOR [Concomitant]
     Indication: HYPERLIPIDAEMIA
     Dosage: 50 MG, UNK
     Route: 048
     Dates: start: 20090302
  24. OLMESARTAN MEDOXOMIL [Concomitant]
     Indication: HYPERTENSION
     Dosage: 40 MG, UNK
     Route: 048
     Dates: start: 20080421

REACTIONS (10)
  - ANGINA PECTORIS [None]
  - NEPHROTIC SYNDROME [None]
  - FEELING COLD [None]
  - HYPOGLYCAEMIA [None]
  - VITREOUS HAEMORRHAGE [None]
  - COLON ADENOMA [None]
  - LUNG SQUAMOUS CELL CARCINOMA STAGE III [None]
  - ATRIOVENTRICULAR BLOCK SECOND DEGREE [None]
  - MALAISE [None]
  - RENAL FAILURE CHRONIC [None]
